FAERS Safety Report 5321056-8 (Version None)
Quarter: 2007Q2

REPORT INFORMATION
  Report Type: 
  Country: None (occurrence: None)
  Receive Date: 20070504
  Receipt Date: 20070502
  Transmission Date: 20071010
  Serious: Yes (Hospitalization)
  Sender: FDA-Public Use
  Company Number: TPA2006A02006

PATIENT
  Age: 62 Year
  Sex: Female
  Weight: 120.2032 kg

DRUGS (7)
  1. ACTOS [Suspect]
     Indication: DIABETES MELLITUS NON-INSULIN-DEPENDENT
     Dosage: SEE IMAGE
     Route: 048
     Dates: start: 20030101, end: 20040101
  2. ACTOS [Suspect]
     Indication: DIABETES MELLITUS NON-INSULIN-DEPENDENT
     Dosage: SEE IMAGE
     Route: 048
     Dates: start: 20040101, end: 20060601
  3. ACTOS [Suspect]
     Indication: DIABETES MELLITUS NON-INSULIN-DEPENDENT
     Dosage: SEE IMAGE
     Route: 048
     Dates: start: 20060601, end: 20060901
  4. PRAVACHOL (PRAVASTATIN SODIUM) (20 MILLIGRAM) [Concomitant]
  5. VASOTEC [Concomitant]
  6. PROZAC (FLUOXETINE HYDROCHLORIDE) (10 MILLIGRAM) [Concomitant]
  7. COUMADIN [Concomitant]

REACTIONS (7)
  - ABDOMINAL DISTENSION [None]
  - EXOSTOSIS [None]
  - FIBROMYALGIA [None]
  - OEDEMA PERIPHERAL [None]
  - PAIN IN EXTREMITY [None]
  - PULMONARY EMBOLISM [None]
  - WEIGHT INCREASED [None]
